FAERS Safety Report 10581360 (Version 11)
Quarter: 2016Q1

REPORT INFORMATION
  Report Type: Report from Study
  Country: US (occurrence: US)
  Receive Date: 20141113
  Receipt Date: 20160308
  Transmission Date: 20160525
  Serious: Yes (Other)
  Sender: FDA-Public Use
  Company Number: US-BAYER-2014-149940

PATIENT
  Age: 76 Year
  Sex: Female
  Weight: 52.61 kg

DRUGS (17)
  1. STIVARGA [Suspect]
     Active Substance: REGORAFENIB
     Indication: HEPATIC CANCER
     Dosage: 160 MG, DAILY, FOR 21 DAYS IN A 28 DAY CYCLE
     Route: 048
     Dates: start: 20140815, end: 2014
  2. STIVARGA [Suspect]
     Active Substance: REGORAFENIB
     Indication: HEPATIC CANCER
     Dosage: 160 MG, DAILY
     Route: 048
     Dates: start: 20140905, end: 2014
  3. STIVARGA [Suspect]
     Active Substance: REGORAFENIB
     Indication: HEPATIC CANCER
     Dosage: 120MG DAILY FOR 21 DAYS
     Route: 048
     Dates: start: 20140904
  4. PRILOSEC [Concomitant]
     Active Substance: OMEPRAZOLE MAGNESIUM
  5. STIVARGA [Suspect]
     Active Substance: REGORAFENIB
     Indication: HEPATIC CANCER
     Dosage: DAILY DOSE 80 MG
     Route: 048
     Dates: start: 20140908
  6. METHYLPREDNISOLONE [METHYLPREDNISOLONE] [Concomitant]
     Active Substance: METHYLPREDNISOLONE
     Dosage: 4 MG
  7. KEFLEX [Concomitant]
     Active Substance: CEPHALEXIN
  8. STIVARGA [Suspect]
     Active Substance: REGORAFENIB
     Indication: HEPATIC CANCER
     Dosage: 120 MG, QD
     Route: 048
  9. STIVARGA [Suspect]
     Active Substance: REGORAFENIB
     Indication: HEPATIC CANCER
     Dosage: 120 MG, DAILY FOR 21 DAYS IN A 28 DAY CYCLE
     Route: 048
     Dates: start: 2014
  10. ALPRAZOLAM. [Concomitant]
     Active Substance: ALPRAZOLAM
     Dosage: 0.5 MG
  11. OMEPRAZOLE. [Concomitant]
     Active Substance: OMEPRAZOLE
     Dosage: 20 MG
  12. OXYCODONE [Concomitant]
     Active Substance: OXYCODONE
  13. STIVARGA [Suspect]
     Active Substance: REGORAFENIB
     Indication: HEPATIC CANCER
     Dosage: 3 TABS DAILY X 21 DAYS
     Route: 048
     Dates: start: 20151107
  14. STIVARGA [Suspect]
     Active Substance: REGORAFENIB
     Indication: HEPATIC CANCER
     Dosage: 120 MG (3 TABLETS)
     Route: 048
     Dates: start: 20140815
  15. ACETAMINOPHEN W/OXYCODONE [Concomitant]
     Active Substance: ACETAMINOPHEN\OXYCODONE HYDROCHLORIDE
     Dosage: 5 MG - 325
  16. AMOXICILLIN. [Concomitant]
     Active Substance: AMOXICILLIN
     Dosage: 250 MG
  17. STIVARGA [Suspect]
     Active Substance: REGORAFENIB
     Indication: HEPATIC CANCER
     Dosage: DAILY DOSE 120 MG FOR 21 DAYS IN A 28 DAYS CYCLE
     Route: 048
     Dates: start: 201409

REACTIONS (32)
  - Pain in extremity [None]
  - Vision blurred [Unknown]
  - Vision blurred [None]
  - Hypoaesthesia [None]
  - Hypoaesthesia [None]
  - Pruritus [Recovered/Resolved]
  - Headache [Unknown]
  - Back pain [Unknown]
  - Disorientation [Unknown]
  - Road traffic accident [None]
  - Dizziness [Unknown]
  - Throat irritation [None]
  - Fatigue [None]
  - Pain of skin [Recovered/Resolved]
  - Balance disorder [Unknown]
  - Arthropathy [Unknown]
  - Dizziness [None]
  - Skin exfoliation [None]
  - Alopecia [Recovered/Resolved]
  - Hepatic enzyme increased [Unknown]
  - Neuropathy peripheral [None]
  - Skin exfoliation [None]
  - Dysphonia [None]
  - Stomatitis [Recovered/Resolved]
  - Impaired driving ability [Unknown]
  - Fatigue [Unknown]
  - Balance disorder [None]
  - Neuropathy peripheral [Unknown]
  - Eye discharge [None]
  - Drug dose omission [None]
  - Off label use [None]
  - Bronchitis [Unknown]

NARRATIVE: CASE EVENT DATE: 201410
